FAERS Safety Report 4660983-1 (Version None)
Quarter: 2005Q2

REPORT INFORMATION
  Report Type: 
  Country: None (occurrence: None)
  Receive Date: 20050511
  Receipt Date: 20050428
  Transmission Date: 20051028
  Serious: Yes (Hospitalization)
  Sender: FDA-Public Use
  Company Number: 2005069057

PATIENT
  Sex: Male

DRUGS (1)
  1. BEXTRA [Suspect]
     Indication: HEADACHE
     Dates: start: 20030501

REACTIONS (2)
  - MENINGIOMA BENIGN [None]
  - SHOULDER PAIN [None]
